FAERS Safety Report 4455038-5 (Version None)
Quarter: 2004Q3

REPORT INFORMATION
  Report Type: 
  Country: None (occurrence: None)
  Receive Date: 20040917
  Receipt Date: 20040830
  Transmission Date: 20050211
  Serious: Yes (Hospitalization, Other)
  Sender: FDA-Public Use
  Company Number: US_0404102075

PATIENT
  Age: 15 Year
  Sex: Male
  Weight: 54 kg

DRUGS (4)
  1. ATOMOXETINE HYDROCHLORIDE [Suspect]
     Indication: ATTENTION DEFICIT/HYPERACTIVITY DISORDER
     Dosage: 1200 MG
  2. BUPROPION HCL [Concomitant]
  3. RISPERIDONE [Concomitant]
  4. ALPRAZOLAM [Concomitant]

REACTIONS (20)
  - ANXIETY [None]
  - ARRHYTHMIA [None]
  - BLOOD ALKALINE PHOSPHATASE INCREASED [None]
  - BLOOD CHLORIDE DECREASED [None]
  - BLOOD GLUCOSE INCREASED [None]
  - BLOOD UREA NITROGEN/CREATININE RATIO DECREASED [None]
  - CONDUCTION DISORDER [None]
  - CONFUSIONAL STATE [None]
  - CONVULSION [None]
  - DEPRESSION [None]
  - DRY MOUTH [None]
  - ELECTROCARDIOGRAM QT CORRECTED INTERVAL PROLONGED [None]
  - HEART RATE INCREASED [None]
  - INTENTIONAL OVERDOSE [None]
  - NEUROLOGICAL EXAMINATION ABNORMAL [None]
  - POSTICTAL STATE [None]
  - QRS AXIS ABNORMAL [None]
  - TREMOR [None]
  - VENTRICULAR HYPERTROPHY [None]
  - WHITE BLOOD CELL COUNT INCREASED [None]
